FAERS Safety Report 5801353-X (Version None)
Quarter: 2008Q2

REPORT INFORMATION
  Report Type: 
  Country: None (occurrence: None)
  Receive Date: 20080626
  Receipt Date: 20080425
  Transmission Date: 20081010
  Serious: Yes (Other)
  Sender: FDA-Public Use
  Company Number: 561212

PATIENT
  Age: 80 Year
  Sex: Male

DRUGS (1)
  1. XELODA [Suspect]
     Indication: RECTAL NEOPLASM
     Dosage: 1500 MG DAILY ORAL
     Route: 048

REACTIONS (1)
  - ARTERIOSPASM CORONARY [None]
